FAERS Safety Report 5247306-4 (Version None)
Quarter: 2007Q1

REPORT INFORMATION
  Report Type: 
  Country: None (occurrence: None)
  Receive Date: 20070223
  Receipt Date: 20070223
  Transmission Date: 20070707
  Serious: No
  Sender: FDA-Public Use
  Company Number: None

PATIENT
  Sex: Male
  Weight: 72.5755 kg

DRUGS (1)
  1. TEGASEROD [Suspect]
     Indication: COLONOSCOPY
     Dosage: 6 MG  ONCE  PO
     Route: 048
     Dates: start: 20070116, end: 20070116

REACTIONS (6)
  - ASTHENIA [None]
  - DIARRHOEA [None]
  - FEELING ABNORMAL [None]
  - LOSS OF CONSCIOUSNESS [None]
  - NAUSEA [None]
  - VOMITING [None]
